FAERS Safety Report 14673242 (Version 1)
Quarter: 2018Q1

REPORT INFORMATION
  Report Type: Spontaneous
  Country: US (occurrence: US)
  Receive Date: 20180323
  Receipt Date: 20180323
  Transmission Date: 20180509
  Serious: Yes (Death)
  Sender: FDA-Public Use
  Company Number: PHHY2018US045394

PATIENT
  Age: 55 Year
  Sex: Female

DRUGS (1)
  1. ACETAMINOPHEN. [Suspect]
     Active Substance: ACETAMINOPHEN
     Indication: PRODUCT USED FOR UNKNOWN INDICATION
     Route: 065

REACTIONS (12)
  - Hypotension [Fatal]
  - Hypoglycaemia [Fatal]
  - Acute lung injury [Fatal]
  - Respiratory depression [Fatal]
  - Metabolic acidosis [Fatal]
  - Coma [Fatal]
  - Coagulopathy [Fatal]
  - Acute kidney injury [Fatal]
  - Tachycardia [Fatal]
  - Electrocardiogram QRS complex prolonged [Fatal]
  - Agitation [Fatal]
  - Hepatotoxicity [Fatal]
